FAERS Safety Report 6306860-1 (Version None)
Quarter: 2009Q3

REPORT INFORMATION
  Report Type: 
  Country: None (occurrence: None)
  Receive Date: 20090812
  Receipt Date: 20090731
  Transmission Date: 20100115
  Serious: Yes (Hospitalization, Other)
  Sender: FDA-Public Use
  Company Number: US-PFIZER INC-2009249818

PATIENT
  Sex: Male
  Weight: 74.376 kg

DRUGS (15)
  1. SUNITINIB MALATE [Suspect]
     Indication: MALIGNANT NEOPLASM OF ISLETS OF LANGERHANS
     Dosage: 12.5 MG, DAILY, EVERY DAY, TDD 12.5 MG
     Route: 048
     Dates: start: 20090714, end: 20090724
  2. ALL OTHER THERAPEUTIC PRODUCTS [Suspect]
     Dosage: UNK
  3. COUMADIN [Concomitant]
     Dosage: UNK
  4. SCOPOLAMINE [Concomitant]
     Route: 062
  5. ZOFRAN [Concomitant]
     Dosage: UNK
  6. COMPAZINE [Concomitant]
     Dosage: UNK
  7. DESAMETHASONE [Concomitant]
     Dosage: UNK
  8. K-CHLOR [Concomitant]
     Dosage: UNK
  9. SLO-MAG [Concomitant]
     Dosage: UNK
  10. IMODIUM [Concomitant]
     Dosage: UNK
  11. LOMOTIL [Concomitant]
     Dosage: UNK
  12. ALL OTHER THERAPEUTIC PRODUCTS [Concomitant]
     Dosage: UNK
     Dates: end: 20090723
  13. CHOLESTYRAMINE [Concomitant]
     Dosage: UNK
  14. OMEPRAZOL [Concomitant]
     Dosage: UNK
  15. OCTREOTIDE [Concomitant]
     Dosage: UNK

REACTIONS (9)
  - BLOOD POTASSIUM DECREASED [None]
  - BODY HEIGHT DECREASED [None]
  - DIARRHOEA [None]
  - DYSPEPSIA [None]
  - HYPOMAGNESAEMIA [None]
  - NAUSEA [None]
  - PNEUMOPERITONEUM [None]
  - VOMITING [None]
  - WEIGHT DECREASED [None]
